FAERS Safety Report 5338525-7 (Version None)
Quarter: 2007Q2

REPORT INFORMATION
  Report Type: 
  Country: None (occurrence: None)
  Receive Date: 20070322
  Receipt Date: 20060306
  Transmission Date: 20071010
  Serious: Yes (Other)
  Sender: FDA-Public Use
  Company Number: 200610129BCC

PATIENT
  Sex: Female
  Weight: 120 kg

DRUGS (2)
  1. ALEVE (CAPLET) [Suspect]
     Indication: ROTATOR CUFF REPAIR
     Dosage: 220 MG, QD, ORAL
     Route: 048
     Dates: start: 20050901
  2. ALLEGRA [Concomitant]

REACTIONS (2)
  - CONTUSION [None]
  - HAEMATOCHEZIA [None]
